FAERS Safety Report 10253184 (Version 1)
Quarter: 2014Q2

REPORT INFORMATION
  Report Type: Spontaneous
  Country: US (occurrence: None)
  Receive Date: 20140619
  Receipt Date: 20140619
  Transmission Date: 20141212
  Serious: Yes (Other)
  Sender: FDA-Public Use
  Company Number: None

PATIENT
  Age: 51 Year
  Sex: Male

DRUGS (2)
  1. TESTIM [Suspect]
     Indication: BLOOD TESTOSTERONE DECREASED
     Dosage: 1 A DAY ARMPITS
  2. AXIRO [Suspect]
     Dosage: 1 A DAY ARMPITS

REACTIONS (3)
  - Inflammation [None]
  - Vascular pain [None]
  - Vein discolouration [None]
